FAERS Safety Report 9850643 (Version 2)
Quarter: 2014Q1

REPORT INFORMATION
  Report Type: Spontaneous
  Country: US (occurrence: US)
  Receive Date: 20140128
  Receipt Date: 20140128
  Transmission Date: 20141002
  Serious: No
  Sender: FDA-Public Use
  Company Number: US-GILEAD-2012-0050811

PATIENT
  Age: 24 Year
  Sex: Male
  Weight: 53.52 kg

DRUGS (7)
  1. CAYSTON [Suspect]
     Indication: PSEUDOMONAS INFECTION
     Dosage: 75 MG, UNK
     Dates: start: 201110, end: 20120209
  2. FLONASE [Concomitant]
  3. CHOLECALCIFEROL [Concomitant]
  4. ADEKS                              /01439301/ [Concomitant]
  5. PULMOZYME [Concomitant]
  6. ZYRTEC [Concomitant]
  7. ZENPEP [Concomitant]

REACTIONS (1)
  - Rash [Recovered/Resolved]
